FAERS Safety Report 5952908-3 (Version None)
Quarter: 2008Q4

REPORT INFORMATION
  Report Type: 
  Country: None (occurrence: None)
  Receive Date: 20081114
  Receipt Date: 20081110
  Transmission Date: 20090506
  Serious: Yes (Hospitalization)
  Sender: FDA-Public Use
  Company Number: DE-ABBOTT-08P-062-0484807-00

PATIENT
  Sex: Female
  Weight: 59 kg

DRUGS (3)
  1. HUMIRA [Suspect]
     Indication: RHEUMATOID ARTHRITIS
     Route: 058
     Dates: start: 20080510
  2. HUMIRA [Suspect]
     Indication: ANKYLOSING SPONDYLITIS
  3. VALORON N [Concomitant]
     Indication: PAIN

REACTIONS (2)
  - ABDOMINAL PAIN [None]
  - NASOPHARYNGITIS [None]
